FAERS Safety Report 8858775 (Version 2)
Quarter: 2012Q4

REPORT INFORMATION
  Report Type: Report from Study
  Country: CA (occurrence: CA)
  Receive Date: 20121024
  Receipt Date: 20121123
  Transmission Date: 20130627
  Serious: Yes (Other)
  Sender: FDA-Public Use
  Company Number: CA-JNJFOC-20121008248

PATIENT
  Age: 35 Year
  Sex: Female
  Weight: 68 kg

DRUGS (5)
  1. REMICADE [Suspect]
     Indication: CROHN^S DISEASE
     Route: 042
     Dates: start: 20120913
  2. REMICADE [Suspect]
     Indication: CROHN^S DISEASE
     Dosage: once every 8
     Route: 042
     Dates: start: 20120830
  3. REMICADE [Suspect]
     Indication: CROHN^S DISEASE
     Route: 042
     Dates: start: 20121011, end: 20121011
  4. IMURAN [Concomitant]
     Dosage: 3 pills
     Route: 065
  5. BENADRYL [Concomitant]
     Route: 042

REACTIONS (7)
  - Cough [Unknown]
  - Throat irritation [Unknown]
  - Paraesthesia [Unknown]
  - Infusion related reaction [Unknown]
  - Rash [Not Recovered/Not Resolved]
  - Pruritus [Not Recovered/Not Resolved]
  - Erythema [Unknown]
